FAERS Safety Report 14890298 (Version 13)
Quarter: 2025Q1

REPORT INFORMATION
  Report Type: Spontaneous
  Country: US (occurrence: US)
  Receive Date: 20180514
  Receipt Date: 20250303
  Transmission Date: 20250408
  Serious: Yes (Other)
  Sender: PFIZER
  Company Number: US-PFIZER INC-2018193315

PATIENT
  Age: 63 Year
  Sex: Female
  Weight: 82 kg

DRUGS (17)
  1. XELJANZ XR [Suspect]
     Active Substance: TOFACITINIB CITRATE
     Indication: Rheumatoid arthritis
     Dosage: 11 MG, 1X/DAY
     Dates: start: 20180531
  2. CELEBREX [Concomitant]
     Active Substance: CELECOXIB
     Indication: Rheumatoid arthritis
     Dosage: 200 MG, 2X/DAY
     Dates: start: 2001
  3. ULTRAM [Concomitant]
     Active Substance: TRAMADOL HYDROCHLORIDE
     Indication: Rheumatoid arthritis
     Dates: start: 2001
  4. FOSAMAX [Concomitant]
     Active Substance: ALENDRONATE SODIUM
  5. XALATAN [Concomitant]
     Active Substance: LATANOPROST
  6. DORZOLAMIDE [Concomitant]
     Active Substance: DORZOLAMIDE
  7. ECOTRIN [Concomitant]
     Active Substance: ASPIRIN
  8. LOTRIMIN [CLOTRIMAZOLE] [Concomitant]
  9. ROSUVASTATIN [Concomitant]
     Active Substance: ROSUVASTATIN
  10. SERTRALINE [Concomitant]
     Active Substance: SERTRALINE HYDROCHLORIDE
  11. HYDROCHLOROTHIAZIDE [Concomitant]
     Active Substance: HYDROCHLOROTHIAZIDE
  12. ATENOLOL [Concomitant]
     Active Substance: ATENOLOL
  13. MYRBETRIQ [Concomitant]
     Active Substance: MIRABEGRON
  14. TYLENOL [Concomitant]
     Active Substance: ACETAMINOPHEN
  15. DOXEPIN [Concomitant]
     Active Substance: DOXEPIN
  16. DICLOFENAC DIETHYLAMINE [Concomitant]
     Active Substance: DICLOFENAC DIETHYLAMINE
  17. CELECOXIB [Concomitant]
     Active Substance: CELECOXIB

REACTIONS (11)
  - Foot operation [Unknown]
  - Arthrodesis [Unknown]
  - Lower limb fracture [Unknown]
  - Nerve injury [Unknown]
  - Hypertonic bladder [Unknown]
  - Ear infection [Unknown]
  - Infection [Unknown]
  - Cystitis [Unknown]
  - Fungal infection [Not Recovered/Not Resolved]
  - Disease recurrence [Not Recovered/Not Resolved]
  - Nasopharyngitis [Unknown]
